FAERS Safety Report 8305695-8 (Version None)
Quarter: 2012Q2

REPORT INFORMATION
  Report Type: 
  Country: None (occurrence: None)
  Receive Date: 20120423
  Receipt Date: 20120413
  Transmission Date: 20120825
  Serious: Yes (Other)
  Sender: FDA-Public Use
  Company Number: US-JNJFOC-20120406491

PATIENT
  Sex: Male
  Weight: 90.72 kg

DRUGS (4)
  1. SIMPONI [Suspect]
     Indication: PSORIATIC ARTHROPATHY
     Route: 058
     Dates: start: 20111001, end: 20120301
  2. ROBAXIN [Concomitant]
     Indication: PAIN
     Route: 048
     Dates: start: 20110801
  3. OXYCODONE HCL [Concomitant]
     Indication: PAIN
     Dosage: 10-20MG DAILY
     Route: 048
     Dates: start: 20110801
  4. VALIUM [Concomitant]
     Indication: PAIN
     Route: 048
     Dates: start: 20110801

REACTIONS (1)
  - MASS [None]
